FAERS Safety Report 9977363 (Version 2)
Quarter: 2014Q1

REPORT INFORMATION
  Report Type: Report from Study
  Country: US (occurrence: US)
  Receive Date: 20140306
  Receipt Date: 20140306
  Transmission Date: 20141002
  Serious: No
  Sender: FDA-Public Use
  Company Number: US-ABBVIE-13P-163-1124158-00

PATIENT
  Age: 77 Year
  Sex: Male

DRUGS (2)
  1. HUMIRA [Suspect]
     Indication: CROHN^S DISEASE
     Route: 058
     Dates: start: 20130426, end: 20130802
  2. PENTASA [Concomitant]
     Indication: CROHN^S DISEASE

REACTIONS (4)
  - Oral pain [Recovering/Resolving]
  - Lichen planus [Recovering/Resolving]
  - Fungal infection [Recovering/Resolving]
  - Dysphagia [Not Recovered/Not Resolved]
